FAERS Safety Report 15213586 (Version 1)
Quarter: 2018Q3

REPORT INFORMATION
  Report Type: Spontaneous
  Country: ES (occurrence: ES)
  Receive Date: 20180730
  Receipt Date: 20180730
  Transmission Date: 20181010
  Serious: Yes (Hospitalization, Other)
  Sender: FDA-Public Use
  Company Number: ES-AUROBINDO-AUR-APL-2018-037942

PATIENT
  Age: 36 Year
  Sex: Male
  Weight: 130 kg

DRUGS (8)
  1. ARIPIPRAZOLE TABLETS [Suspect]
     Active Substance: ARIPIPRAZOLE
     Dosage: 15 MILLIGRAM, DAILY
     Route: 048
     Dates: start: 20140604, end: 20150413
  2. LORAZEPAM. [Concomitant]
     Active Substance: LORAZEPAM
     Indication: ANXIETY
     Dosage: 2 MG, AS NEEDED
     Route: 048
     Dates: start: 20150528
  3. ARIPIPRAZOLE TABLETS [Suspect]
     Active Substance: ARIPIPRAZOLE
     Indication: SCHIZOPHRENIA
     Dosage: 10 MILLIGRAM, DAILY
     Route: 048
     Dates: start: 20140502
  4. LORAZEPAM. [Concomitant]
     Active Substance: LORAZEPAM
     Indication: INSOMNIA
     Dosage: UNK
     Route: 065
  5. ARIPIPRAZOL [Suspect]
     Active Substance: ARIPIPRAZOLE
     Indication: SCHIZOPHRENIA
     Dosage: 400 MG, (ONLY ONE INJECTION)
     Route: 065
     Dates: start: 20150528, end: 20150528
  6. RISPERIDONE. [Concomitant]
     Active Substance: RISPERIDONE
     Dosage: 6 MILLIGRAM, DAILY
     Route: 048
     Dates: start: 20150523, end: 20150731
  7. RISPERIDONE. [Concomitant]
     Active Substance: RISPERIDONE
     Indication: PRODUCT USED FOR UNKNOWN INDICATION
     Dosage: 25 MG, QD
     Route: 048
     Dates: start: 20150519, end: 20150523
  8. RISPERIDONE. [Concomitant]
     Active Substance: RISPERIDONE
     Dosage: 3 MILLIGRAM, DAILY
     Route: 048
     Dates: end: 20140502

REACTIONS (2)
  - Drug ineffective [Unknown]
  - Hospitalisation [Recovered/Resolved]

NARRATIVE: CASE EVENT DATE: 20150523
